FAERS Safety Report 5607514-7 (Version None)
Quarter: 2008Q1

REPORT INFORMATION
  Report Type: 
  Country: None (occurrence: None)
  Receive Date: 20080130
  Receipt Date: 20080116
  Transmission Date: 20080703
  Serious: Yes (Death, Hospitalization, Other)
  Sender: FDA-Public Use
  Company Number: PHHY2007JP00668

PATIENT
  Age: 73 Year
  Sex: Male
  Weight: 57 kg

DRUGS (8)
  1. GLEEVEC [Suspect]
     Indication: GASTROINTESTINAL STROMAL TUMOUR
     Dosage: 400 MG, QD
     Route: 048
     Dates: start: 20040407, end: 20070427
  2. GLEEVEC [Suspect]
     Dosage: 400 MG, BIW
     Route: 048
     Dates: start: 20040506, end: 20060614
  3. CEREKINON [Concomitant]
     Indication: CONSTIPATION
     Dosage: 300 MG, UNK
     Route: 048
     Dates: start: 20040407
  4. LAC B [Concomitant]
     Indication: CONSTIPATION
     Dosage: 2 MG, UNK
     Route: 048
     Dates: start: 20040409
  5. BERIZYM [Concomitant]
     Indication: CONSTIPATION
     Dosage: 1.2 MG, UNK
     Route: 048
     Dates: start: 20040407
  6. MAGNESIUM OXIDE [Concomitant]
     Indication: CONSTIPATION
     Dosage: 0.6 MG, UNK
     Route: 048
     Dates: start: 20040407
  7. NORVASC [Concomitant]
     Indication: HYPERTENSION
     Dosage: 5 MG, UNK
     Route: 048
     Dates: start: 20040407
  8. LASIX [Concomitant]
     Indication: ASCITES
     Dosage: 40 MG, UNK
     Route: 048
     Dates: start: 20040407

REACTIONS (14)
  - ABDOMINAL DISTENSION [None]
  - ABDOMINAL WALL MASS [None]
  - ANAEMIA [None]
  - ASCITES [None]
  - ATRIAL FIBRILLATION [None]
  - CHEST WALL CYST [None]
  - DIZZINESS [None]
  - HAEMOGLOBIN DECREASED [None]
  - MALIGNANT NEOPLASM PROGRESSION [None]
  - METASTASES TO LIVER [None]
  - METASTASES TO PERITONEUM [None]
  - PALPITATIONS [None]
  - RASH [None]
  - RED BLOOD CELL COUNT DECREASED [None]
